FAERS Safety Report 17779508 (Version 2)
Quarter: 2020Q2

REPORT INFORMATION
  Report Type: Spontaneous
  Country: FR (occurrence: FR)
  Receive Date: 20200513
  Receipt Date: 20200519
  Transmission Date: 20200714
  Serious: Yes (Hospitalization)
  Sender: FDA-Public Use
  Company Number: FR-ASTRAZENECA-2020SE61856

PATIENT
  Age: 30 Year
  Sex: Female

DRUGS (6)
  1. LARGACTIL [Suspect]
     Active Substance: CHLORPROMAZINE
     Route: 065
  2. CANNABIS [Suspect]
     Active Substance: CANNABIS SATIVA SUBSP. INDICA TOP
     Route: 065
  3. METHADONE [Suspect]
     Active Substance: METHADONE HYDROCHLORIDE
     Route: 065
  4. XEROQUEL [Suspect]
     Active Substance: QUETIAPINE FUMARATE
     Dosage: 300
     Route: 048
  5. LEXOMIL [Suspect]
     Active Substance: BROMAZEPAM
     Route: 065
  6. COCAINE [Suspect]
     Active Substance: COCAINE
     Route: 065

REACTIONS (4)
  - Overdose [Recovered/Resolved]
  - Depressed level of consciousness [Unknown]
  - Exposure during pregnancy [Recovered/Resolved]
  - Threatened labour [Recovered/Resolved]

NARRATIVE: CASE EVENT DATE: 20200115
